FAERS Safety Report 18908403 (Version 3)
Quarter: 2021Q1

REPORT INFORMATION
  Report Type: Report from Study
  Country: US (occurrence: US)
  Receive Date: 20210218
  Receipt Date: 20210331
  Transmission Date: 20210420
  Serious: No
  Sender: FDA-Public Use
  Company Number: NVSC2021US033187

PATIENT
  Sex: Female

DRUGS (1)
  1. PIQRAY [Suspect]
     Active Substance: ALPELISIB
     Indication: BREAST CANCER
     Dosage: 200 MG, QD
     Route: 048

REACTIONS (3)
  - Rash [Unknown]
  - Headache [Unknown]
  - Hypersensitivity [Unknown]
